FAERS Safety Report 21472908 (Version 1)
Quarter: 2022Q4

REPORT INFORMATION
  Report Type: Spontaneous
  Country: US (occurrence: None)
  Receive Date: 20221018
  Receipt Date: 20221018
  Transmission Date: 20230113
  Serious: No
  Sender: FDA-Public Use
  Company Number: None

PATIENT
  Age: 43 Year
  Sex: Female
  Weight: 51.3 kg

DRUGS (3)
  1. ADDYI [Suspect]
     Active Substance: FLIBANSERIN
     Dosage: FREQUENCY : AT BEDTIME;?
     Route: 048
     Dates: start: 20221013, end: 20221014
  2. EMGALITY [Concomitant]
     Active Substance: GALCANEZUMAB-GNLM
  3. VITAMINS [Concomitant]
     Active Substance: VITAMINS

REACTIONS (8)
  - Somnolence [None]
  - Middle insomnia [None]
  - Limb discomfort [None]
  - Movement disorder [None]
  - Feeling abnormal [None]
  - Fear [None]
  - Slow speech [None]
  - Therapy cessation [None]

NARRATIVE: CASE EVENT DATE: 20221014
